FAERS Safety Report 13739333 (Version 2)
Quarter: 2017Q3

REPORT INFORMATION
  Report Type: Spontaneous
  Country: JP (occurrence: JP)
  Receive Date: 20170710
  Receipt Date: 20170914
  Transmission Date: 20171127
  Serious: Yes (Life-Threatening, Hospitalization)
  Sender: FDA-Public Use
  Company Number: JP-CELGENEUS-JPN-20170700476

PATIENT
  Age: 73 Year
  Sex: Female
  Weight: 36 kg

DRUGS (10)
  1. COCARL [Concomitant]
     Active Substance: ACETAMINOPHEN
     Indication: CANCER PAIN
     Dosage: 800 MILLIGRAM
     Route: 048
     Dates: start: 20170502, end: 20170606
  2. MAGNESIUM OXIDE. [Concomitant]
     Active Substance: MAGNESIUM OXIDE
     Indication: CONSTIPATION
     Dosage: 990 MILLIGRAM
     Route: 048
     Dates: start: 20170428, end: 20170606
  3. HUMALOG [Concomitant]
     Active Substance: INSULIN LISPRO
     Indication: DIABETES MELLITUS
     Route: 058
     Dates: start: 20170428, end: 20170606
  4. NEXIUM [Concomitant]
     Active Substance: ESOMEPRAZOLE MAGNESIUM
     Indication: GASTROOESOPHAGEAL REFLUX DISEASE
     Dosage: 10 MILLIGRAM
     Route: 048
     Dates: start: 20170428, end: 20170606
  5. LIXIANA [Concomitant]
     Active Substance: EDOXABAN TOSYLATE
     Indication: VENOUS THROMBOSIS
     Dosage: 30 MILLIGRAM
     Route: 048
     Dates: start: 20170428, end: 20170606
  6. GEMCITABINE HYDROCHLORIDE. [Suspect]
     Active Substance: GEMCITABINE HYDROCHLORIDE
     Indication: PANCREATIC CARCINOMA METASTATIC
     Dosage: 1240 MILLIGRAM
     Route: 041
  7. HEPARIN [Concomitant]
     Active Substance: HEPARIN SODIUM
     Indication: PRODUCT USED FOR UNKNOWN INDICATION
     Dosage: 15000 IU (INTERNATIONAL UNIT)
     Route: 065
     Dates: start: 20170510, end: 20170513
  8. EDARAVONE [Concomitant]
     Active Substance: EDARAVONE
     Indication: PRODUCT USED FOR UNKNOWN INDICATION
     Dosage: 60 MILLIGRAM
     Route: 065
     Dates: start: 20170510, end: 20170519
  9. ABRAXANE [Suspect]
     Active Substance: PACLITAXEL
     Indication: PANCREATIC CARCINOMA METASTATIC
     Dosage: 155 MILLIGRAM
     Route: 041
  10. INSULIN GLARGINE [Concomitant]
     Active Substance: INSULIN GLARGINE
     Indication: DIABETES MELLITUS
     Route: 058
     Dates: start: 20170428, end: 20170606

REACTIONS (1)
  - Cerebral infarction [Not Recovered/Not Resolved]

NARRATIVE: CASE EVENT DATE: 20170510
